FAERS Safety Report 13472148 (Version 1)
Quarter: 2017Q2

REPORT INFORMATION
  Report Type: Spontaneous
  Country: US (occurrence: US)
  Receive Date: 20170422
  Receipt Date: 20170422
  Transmission Date: 20170830
  Serious: No
  Sender: FDA-Public Use
  Company Number: None

PATIENT
  Age: 34 Year
  Sex: Female
  Weight: 73.35 kg

DRUGS (9)
  1. ESTRADIOL. [Concomitant]
     Active Substance: ESTRADIOL
  2. GABAPENTIN. [Concomitant]
     Active Substance: GABAPENTIN
  3. CYMBALTA [Suspect]
     Active Substance: DULOXETINE HYDROCHLORIDE
     Indication: PAIN
     Dosage: ?          QUANTITY:1 CAPSULE(S);?
     Route: 048
     Dates: start: 20161001, end: 20170330
  4. LISINOPRIL. [Concomitant]
     Active Substance: LISINOPRIL
  5. YOUNG LIVING OMEGAGIZE OMEGA-3 FISH OIL COMPLEX [Concomitant]
  6. CYMBALTA [Suspect]
     Active Substance: DULOXETINE HYDROCHLORIDE
     Indication: DEPRESSION
     Dosage: ?          QUANTITY:1 CAPSULE(S);?
     Route: 048
     Dates: start: 20161001, end: 20170330
  7. CITRACAL + D3 [Concomitant]
  8. ONE A DAY WOMEN^S MENOPAUSE FORMULA MULTIVITAMIN [Concomitant]
  9. YOUNG LIVING SUPER C VITAMIN C SUPPLEMENT [Concomitant]

REACTIONS (10)
  - Abdominal discomfort [None]
  - Mood swings [None]
  - Loss of personal independence in daily activities [None]
  - Headache [None]
  - Paraesthesia [None]
  - Disturbance in attention [None]
  - Confusional state [None]
  - Dizziness [None]
  - Aphasia [None]
  - Fatigue [None]

NARRATIVE: CASE EVENT DATE: 20170331
